FAERS Safety Report 12589993 (Version 1)
Quarter: 2016Q3

REPORT INFORMATION
  Report Type: Spontaneous
  Country: US (occurrence: US)
  Receive Date: 20160725
  Receipt Date: 20160725
  Transmission Date: 20161109
  Serious: Yes (Hospitalization)
  Sender: FDA-Public Use
  Company Number: US-PFIZER INC-2016358195

PATIENT

DRUGS (2)
  1. WATER BACTERIOSTATIC [Suspect]
     Active Substance: WATER
     Dosage: UNK
  2. SCULPTRA [Suspect]
     Active Substance: POLYLACTIDE, L-

REACTIONS (2)
  - Dizziness [Unknown]
  - Dyspnoea [Unknown]
